FAERS Safety Report 16078018 (Version 2)
Quarter: 2020Q3

REPORT INFORMATION
  Report Type: Report from Study
  Country: BE (occurrence: BE)
  Receive Date: 20190315
  Receipt Date: 20190408
  Transmission Date: 20201105
  Serious: Yes (Death)
  Sender: FDA-Public Use
  Company Number: BE-JNJFOC-20190318722

PATIENT
  Age: 73 Year
  Sex: Female

DRUGS (3)
  1. IBRUTINIB [Suspect]
     Active Substance: IBRUTINIB
     Route: 048
  2. OBINUTUZUMAB. [Suspect]
     Active Substance: OBINUTUZUMAB
     Indication: CHRONIC LYMPHOCYTIC LEUKAEMIA
     Dosage: 3 TIMES IN 4 WEEKS C2?6 Q4W??START PERIOD: 1272 (DAYS)
     Route: 042
     Dates: start: 20150910
  3. IBRUTINIB [Suspect]
     Active Substance: IBRUTINIB
     Indication: CHRONIC LYMPHOCYTIC LEUKAEMIA
     Dosage: START PERIOD: 1272 DAYS
     Route: 048
     Dates: start: 20150910

REACTIONS (1)
  - Death [Fatal]

NARRATIVE: CASE EVENT DATE: 20190304
